FAERS Safety Report 5805372-9 (Version None)
Quarter: 2008Q3

REPORT INFORMATION
  Report Type: 
  Country: None (occurrence: None)
  Receive Date: 20080708
  Receipt Date: 20080708
  Transmission Date: 20090109
  Serious: Yes (Death, Life-Threatening, Hospitalization)
  Sender: FDA-Public Use
  Company Number: None

PATIENT
  Age: 74 Year
  Sex: Male
  Weight: 56.6996 kg

DRUGS (1)
  1. DIGITEK 0.125 MG [Suspect]
     Indication: ISCHAEMIC CARDIOMYOPATHY
     Dosage: 0.125 MG 1 TABLET DAILY ORAL
     Route: 048
     Dates: end: 20071105

REACTIONS (3)
  - CARDIAC DISORDER [None]
  - CHEST PAIN [None]
  - THERAPEUTIC AGENT TOXICITY [None]
